FAERS Safety Report 9729002 (Version 3)
Quarter: 2014Q1

REPORT INFORMATION
  Report Type: Report from Study
  Country: TN (occurrence: TN)
  Receive Date: 20131204
  Receipt Date: 20140121
  Transmission Date: 20141002
  Serious: No
  Sender: FDA-Public Use
  Company Number: TN-US-EMD SERONO, INC.-7201367

PATIENT
  Age: 62 Year
  Sex: Female

DRUGS (6)
  1. REBIF [Suspect]
     Indication: MULTIPLE SCLEROSIS
     Route: 058
     Dates: start: 201012
  2. VITAMIN C                          /00008001/ [Concomitant]
     Indication: VITAMIN SUPPLEMENTATION
     Route: 048
     Dates: start: 201101
  3. VITAMIN E                          /00110501/ [Concomitant]
     Indication: PRODUCT USED FOR UNKNOWN INDICATION
     Route: 048
     Dates: start: 201101
  4. BACLOFEN [Concomitant]
     Indication: PRODUCT USED FOR UNKNOWN INDICATION
     Dosage: HALF  TABLET
     Dates: start: 2011
  5. STRUCTUM                           /02117803/ [Concomitant]
     Indication: RHEUMATIC DISORDER
     Dosage: 1 TABLET
     Dates: start: 201310
  6. LYRICA [Concomitant]
     Indication: TRIGEMINAL NEURALGIA
     Dates: start: 201101

REACTIONS (3)
  - Enuresis [Recovering/Resolving]
  - Motor dysfunction [Not Recovered/Not Resolved]
  - Balance disorder [Not Recovered/Not Resolved]
